FAERS Safety Report 6544431-2 (Version None)
Quarter: 2010Q1

REPORT INFORMATION
  Report Type: 
  Country: None (occurrence: None)
  Receive Date: 20100120
  Receipt Date: 20100120
  Transmission Date: 20100710
  Serious: No
  Sender: FDA-Public Use
  Company Number: None

PATIENT
  Sex: Male

DRUGS (1)
  1. DIVAPROLEX SPRINKLES SODIUM [Suspect]
     Dosage: 125 MG 3,3,6 TID SCHEDULE

REACTIONS (1)
  - UNEVALUABLE EVENT [None]
